FAERS Safety Report 12091240 (Version 2)
Quarter: 2017Q1

REPORT INFORMATION
  Report Type: Spontaneous
  Country: IT (occurrence: IT)
  Receive Date: 20160218
  Receipt Date: 20170103
  Transmission Date: 20170428
  Serious: Yes (Other)
  Sender: FDA-Public Use
  Company Number: IT-MYLANLABS-2016M1006025

PATIENT

DRUGS (4)
  1. LEVOFLOXACIN MYLAN [Suspect]
     Active Substance: LEVOFLOXACIN
     Dosage: 750 MG, QD
     Route: 048
     Dates: start: 20050616, end: 20051115
  2. LEVOFLOXACIN MYLAN [Suspect]
     Active Substance: LEVOFLOXACIN
     Indication: CUTANEOUS TUBERCULOSIS
     Dosage: 1.5 G, UNK
     Dates: start: 200506, end: 200506
  3. ETAPIAM [Concomitant]
     Active Substance: ETHAMBUTOL HYDROCHLORIDE
     Indication: CUTANEOUS TUBERCULOSIS
     Dosage: 1200 MG
     Route: 048
     Dates: start: 20050616
  4. NICOZID [Concomitant]
     Active Substance: ISONIAZID
     Indication: CUTANEOUS TUBERCULOSIS
     Dosage: 300 MG
     Route: 048
     Dates: start: 20050616

REACTIONS (3)
  - Drug prescribing error [Unknown]
  - Myalgia [Recovering/Resolving]
  - Tremor [Unknown]

NARRATIVE: CASE EVENT DATE: 200506
